FAERS Safety Report 9611509 (Version 2)
Quarter: 2013Q4

REPORT INFORMATION
  Report Type: Report from Study
  Country: JP (occurrence: JP)
  Receive Date: 20131010
  Receipt Date: 20131025
  Transmission Date: 20140711
  Serious: Yes (Hospitalization)
  Sender: FDA-Public Use
  Company Number: JP-AMGEN-JPNCT2013071030

PATIENT
  Age: 59 Year
  Sex: Female
  Weight: 59 kg

DRUGS (7)
  1. DENOSUMAB [Suspect]
     Indication: METASTASES TO BONE
     Dosage: 120 MG, UNK
     Route: 058
     Dates: start: 20121119
  2. FLUOROURACIL [Suspect]
     Indication: PRODUCT USED FOR UNKNOWN INDICATION
     Dosage: UNKNOWN
     Route: 065
     Dates: start: 20121119
  3. EPIRUBICIN [Suspect]
     Indication: PRODUCT USED FOR UNKNOWN INDICATION
     Dosage: UNKNOWN
     Route: 065
     Dates: start: 20121119
  4. CYCLOPHOSPHAMIDE [Suspect]
     Indication: PRODUCT USED FOR UNKNOWN INDICATION
     Dosage: UNKNOWN
     Route: 065
     Dates: start: 20121119
  5. ASPARA-CA [Concomitant]
     Dosage: UNK UNK, UNK
     Route: 048
     Dates: start: 20130507
  6. ALFAROL [Concomitant]
     Dosage: UNK UNK, UNK
     Route: 048
     Dates: start: 20130507
  7. FEMARA [Concomitant]
     Dosage: UNKNOWN
     Route: 065
     Dates: start: 20121109

REACTIONS (2)
  - Hypocalcaemia [Recovered/Resolved]
  - Neutropenia [Recovered/Resolved]
